FAERS Safety Report 10254193 (Version 1)
Quarter: 2014Q2

REPORT INFORMATION
  Report Type: Spontaneous
  Country: CN (occurrence: CN)
  Receive Date: 20140624
  Receipt Date: 20140624
  Transmission Date: 20141212
  Serious: Yes (Hospitalization)
  Sender: FDA-Public Use
  Company Number: CN-ROCHE-1422768

PATIENT
  Sex: Female
  Weight: 50 kg

DRUGS (5)
  1. MABTHERA [Suspect]
     Indication: LYMPHOMA
     Route: 041
     Dates: start: 20130201, end: 20130201
  2. BLEOMYCIN [Suspect]
     Indication: LYMPHOMA
     Route: 041
     Dates: start: 20130201, end: 20130201
  3. ADRIAMYCIN [Concomitant]
     Indication: LYMPHOMA
  4. CYCLOPHOSPHAMIDE [Concomitant]
     Indication: LYMPHOMA
  5. VINCRISTINE [Concomitant]
     Indication: LYMPHOMA

REACTIONS (1)
  - Pulmonary fibrosis [Recovered/Resolved]
